FAERS Safety Report 5376543-3 (Version None)
Quarter: 2007Q2

REPORT INFORMATION
  Report Type: 
  Country: None (occurrence: None)
  Receive Date: 20070629
  Receipt Date: 20070620
  Transmission Date: 20071010
  Serious: Yes (Hospitalization)
  Sender: FDA-Public Use
  Company Number: 2007SP007552

PATIENT
  Age: 40 Year
  Sex: Male
  Weight: 82.4 kg

DRUGS (3)
  1. TEMOZOLOMIDE [Suspect]
     Indication: METASTATIC MALIGNANT MELANOMA
     Dosage: 320 MG
     Dates: start: 20050215
  2. DOMPERIDONE (CON.) [Concomitant]
  3. PREDNISOLONE (CON.) [Concomitant]

REACTIONS (5)
  - ANAEMIA [None]
  - BLOOD LACTATE DEHYDROGENASE INCREASED [None]
  - HYPERBILIRUBINAEMIA [None]
  - NAUSEA [None]
  - VOMITING [None]
